FAERS Safety Report 12160536 (Version 1)
Quarter: 2016Q1

REPORT INFORMATION
  Report Type: Spontaneous
  Country: FR (occurrence: FR)
  Receive Date: 20160308
  Receipt Date: 20160308
  Transmission Date: 20160526
  Serious: Yes (Hospitalization)
  Sender: FDA-Public Use
  Company Number: FR-JNJFOC-20160305840

PATIENT
  Age: 55 Year
  Sex: Male

DRUGS (6)
  1. INEXIUM [Concomitant]
     Active Substance: ESOMEPRAZOLE
     Route: 065
  2. REMICADE [Suspect]
     Active Substance: INFLIXIMAB
     Indication: CROHN^S DISEASE
     Route: 042
     Dates: start: 20140606, end: 20151230
  3. BIPERIDYS [Concomitant]
     Active Substance: DOMPERIDONE
     Route: 065
  4. FLUINDIONE [Concomitant]
     Active Substance: FLUINDIONE
     Route: 065
  5. REMICADE [Suspect]
     Active Substance: INFLIXIMAB
     Indication: RHEUMATOID ARTHRITIS
     Route: 042
     Dates: start: 20140606, end: 20151230
  6. DICETEL [Concomitant]
     Active Substance: PINAVERIUM BROMIDE
     Route: 065

REACTIONS (1)
  - Cutaneous lupus erythematosus [Not Recovered/Not Resolved]

NARRATIVE: CASE EVENT DATE: 201510
